FAERS Safety Report 10174415 (Version 1)
Quarter: 2014Q2

REPORT INFORMATION
  Report Type: Spontaneous
  Country: US (occurrence: US)
  Receive Date: 20140515
  Receipt Date: 20140515
  Transmission Date: 20141212
  Serious: Yes (Hospitalization)
  Sender: FDA-Public Use
  Company Number: US-JNJFOC-20140506847

PATIENT
  Sex: Female
  Weight: 40.4 kg

DRUGS (8)
  1. IMBRUVICA [Suspect]
     Indication: CHRONIC LYMPHOCYTIC LEUKAEMIA
     Route: 048
     Dates: start: 201404
  2. IMODIUM [Concomitant]
     Route: 048
  3. ALPHAGAN [Concomitant]
     Route: 047
  4. TRAMADOL [Concomitant]
     Route: 048
  5. MULTIVITAMIN/00097801/ [Concomitant]
     Route: 048
  6. PRAVASTATIN [Concomitant]
     Route: 048
  7. RAMIPRIL [Concomitant]
     Route: 048
  8. ADVAIR [Concomitant]
     Route: 048

REACTIONS (1)
  - Hypercalcaemia [Recovering/Resolving]
